FAERS Safety Report 8494948-9 (Version None)
Quarter: 2012Q3

REPORT INFORMATION
  Report Type: 
  Country: None (occurrence: None)
  Receive Date: 20120709
  Receipt Date: 20120705
  Transmission Date: 20120928
  Serious: Yes (Life-Threatening, Hospitalization, Disabling, Other)
  Sender: FDA-Public Use
  Company Number: IL-B.I. PHARMACEUTICALS,INC./RIDGEFIELD-2012-AP-00455RI

PATIENT
  Age: 50 Year
  Sex: Male

DRUGS (8)
  1. PRADAXA [Suspect]
     Indication: ATRIAL FIBRILLATION
     Dosage: 300 MG
     Route: 048
  2. CARDILOC [Concomitant]
  3. NORVASC [Concomitant]
  4. ASPIRIN [Suspect]
     Dosage: 100 MG
  5. FUROSEMIDE [Concomitant]
  6. LIPITOR [Concomitant]
  7. COUMADIN [Suspect]
  8. NEOBLOC [Concomitant]

REACTIONS (3)
  - HAEMORRHAGE INTRACRANIAL [None]
  - COMA [None]
  - MENTAL DISORDER DUE TO A GENERAL MEDICAL CONDITION [None]
